FAERS Safety Report 7180406-0 (Version None)
Quarter: 2010Q4

REPORT INFORMATION
  Report Type: 
  Country: None (occurrence: None)
  Receive Date: 20101221
  Receipt Date: 20101214
  Transmission Date: 20110411
  Serious: Yes (Other)
  Sender: FDA-Public Use
  Company Number: B0687245A

PATIENT
  Sex: Female

DRUGS (4)
  1. CLAVAMOX [Suspect]
     Indication: UPPER RESPIRATORY TRACT INFECTION
     Dosage: 3.03G PER DAY
     Route: 048
     Dates: start: 20101030, end: 20101106
  2. MUCODYNE [Concomitant]
     Indication: UPPER RESPIRATORY TRACT INFECTION
     Dosage: .8G PER DAY
     Route: 048
     Dates: start: 20101030
  3. CELTECT [Concomitant]
     Route: 048
  4. ONON [Concomitant]
     Indication: UPPER RESPIRATORY TRACT INFECTION
     Dosage: 1G PER DAY
     Route: 048

REACTIONS (3)
  - ERYTHEMA MULTIFORME [None]
  - PRURITUS [None]
  - RASH [None]
